FAERS Safety Report 4843516-6 (Version None)
Quarter: 2005Q4

REPORT INFORMATION
  Report Type: 
  Country: None (occurrence: None)
  Receive Date: 20051202
  Receipt Date: 20051123
  Transmission Date: 20060501
  Serious: Yes (Death, Hospitalization)
  Sender: FDA-Public Use
  Company Number: PHBS2005GB17432

PATIENT
  Age: 30 Year
  Sex: Female

DRUGS (5)
  1. METHOTREXATE [Concomitant]
     Dosage: SHORT-COURSE
  2. CYCLOPHOSPHAMIDE [Concomitant]
     Dosage: 120 MG/KG/D
  3. CAMPATH [Concomitant]
  4. IRRADIATION [Concomitant]
     Dosage: 14.4 GY IN 6 FRACTIONS
  5. CYCLOSPORINE [Suspect]
     Indication: STEM CELL TRANSPLANT

REACTIONS (10)
  - ABDOMINAL PAIN [None]
  - ACUTE MYELOID LEUKAEMIA RECURRENT [None]
  - CEREBELLAR SYNDROME [None]
  - COORDINATION ABNORMAL [None]
  - DIARRHOEA [None]
  - EYE MOVEMENT DISORDER [None]
  - NERVOUSNESS [None]
  - OPSOCLONUS MYOCLONUS [None]
  - SPEECH DISORDER [None]
  - TREMOR [None]
